FAERS Safety Report 4516666-1 (Version None)
Quarter: 2004Q4

REPORT INFORMATION
  Report Type: 
  Country: None (occurrence: None)
  Receive Date: 20041130
  Receipt Date: 20041116
  Transmission Date: 20050328
  Serious: Yes (Hospitalization)
  Sender: FDA-Public Use
  Company Number: US_0411108064

PATIENT
  Age: 37 Year
  Sex: Female

DRUGS (5)
  1. OLANZAPINE [Suspect]
     Indication: SCHIZOPHRENIA, DISORGANISED TYPE
     Dosage: 20 MG DAY
     Dates: start: 20020501
  2. LITHIUM [Concomitant]
  3. CLONAZEPAM [Concomitant]
  4. BIPERIDEN HYDROCHLORIDE TAB [Concomitant]
  5. SLOW-FE (GERROUS SULFATE EXSICCATED0 [Concomitant]

REACTIONS (17)
  - ASTHENIA [None]
  - BLOOD TRIGLYCERIDES INCREASED [None]
  - BODY TEMPERATURE INCREASED [None]
  - CHOLESTASIS [None]
  - HAEMATOCRIT DECREASED [None]
  - HAEMOGLOBIN DECREASED [None]
  - HEPATIC STEATOSIS [None]
  - HEPATITIS CHOLESTATIC [None]
  - HEPATOTOXICITY [None]
  - HERPES SIMPLEX [None]
  - LEUKOPENIA [None]
  - NAUSEA [None]
  - NEUTROPENIA [None]
  - RED BLOOD CELL COUNT DECREASED [None]
  - SERUM FERRITIN DECREASED [None]
  - SPLENOMEGALY [None]
  - UPPER RESPIRATORY TRACT INFECTION [None]
